FAERS Safety Report 12891583 (Version 3)
Quarter: 2016Q4

REPORT INFORMATION
  Report Type: Spontaneous
  Country: US (occurrence: US)
  Receive Date: 20161028
  Receipt Date: 20161128
  Transmission Date: 20170207
  Serious: Yes (Other)
  Sender: FDA-Public Use
  Company Number: US-DRREDDYS-USA/USA/16/0084307

PATIENT
  Sex: Female

DRUGS (3)
  1. CLARAVIS [Concomitant]
     Active Substance: ISOTRETINOIN
     Indication: PRODUCT USED FOR UNKNOWN INDICATION
     Route: 065
  2. ZENATANE [Suspect]
     Active Substance: ISOTRETINOIN
     Indication: PRODUCT USED FOR UNKNOWN INDICATION
     Route: 065
     Dates: start: 20160527
  3. ZENATANE [Suspect]
     Active Substance: ISOTRETINOIN
     Route: 065
     Dates: start: 20160627

REACTIONS (3)
  - Suicidal ideation [Recovering/Resolving]
  - Stress [Recovering/Resolving]
  - Blood triglycerides increased [Unknown]
